FAERS Safety Report 7158722-8 (Version None)
Quarter: 2010Q4

REPORT INFORMATION
  Report Type: 
  Country: None (occurrence: None)
  Receive Date: 20101214
  Receipt Date: 20101208
  Transmission Date: 20110411
  Serious: Yes (Death, Hospitalization, Other)
  Sender: FDA-Public Use
  Company Number: PL-CELGENEUS-129-21880-10102792

PATIENT
  Sex: Female
  Weight: 71 kg

DRUGS (8)
  1. REVLIMID [Suspect]
     Indication: MULTIPLE MYELOMA
     Route: 048
     Dates: start: 20101007, end: 20101014
  2. DEXAMETHASONE [Concomitant]
     Indication: MULTIPLE MYELOMA
     Route: 048
     Dates: start: 20101007, end: 20101014
  3. TRITACE [Concomitant]
     Route: 065
  4. HYDROCHLOROTHIAZIDE [Concomitant]
     Route: 065
  5. ESSELIV FORTE [Concomitant]
     Route: 065
  6. HEPA-MERZ [Concomitant]
     Route: 065
  7. MILURIT [Concomitant]
     Route: 065
  8. ORTANOL [Concomitant]
     Route: 065

REACTIONS (1)
  - MULTIPLE MYELOMA [None]
